FAERS Safety Report 26207158 (Version 1)
Quarter: 2025Q4

REPORT INFORMATION
  Report Type: Spontaneous
  Country: GB (occurrence: GB)
  Receive Date: 20251229
  Receipt Date: 20251229
  Transmission Date: 20260117
  Serious: Yes (Other)
  Sender: TEVA
  Company Number: GB-MHRA-MIDB-f1c148f9-1aba-4f0f-9219-4e2a58a9f647

PATIENT
  Age: 66 Year
  Sex: Female

DRUGS (6)
  1. ROPINIROLE [Suspect]
     Active Substance: ROPINIROLE
     Indication: Product used for unknown indication
     Route: 065
  2. DOCUSATE [Concomitant]
     Active Substance: DOCUSATE
     Indication: Product used for unknown indication
     Dosage: TIME INTERVAL: AS NECESSARY: TAKE 1-2 BD
  3. CARBIDOPA\LEVODOPA [Concomitant]
     Active Substance: CARBIDOPA\LEVODOPA
     Indication: Product used for unknown indication
     Dosage: 25MG/100MG, AS DIRECTED - AT 06:00, 09:00, 12:00, 15:00 AND 18:00 ACC.
  4. CARBIDOPA\LEVODOPA [Concomitant]
     Active Substance: CARBIDOPA\LEVODOPA
     Indication: Product used for unknown indication
     Dosage: 25MG/100MG, AT NIGHT
     Dates: end: 20251210
  5. BENSERAZIDE HYDROCHLORIDE\LEVODOPA [Concomitant]
     Active Substance: BENSERAZIDE HYDROCHLORIDE\LEVODOPA
     Indication: Product used for unknown indication
     Dosage: TIME INTERVAL: AS NECESSARY: 50MG/12.5MG, UP TO FOUR TIMES A DAY AS DIRECTED BY CLINIC, } MADOPAR
  6. POLYETHYLENE GLYCOLS [Concomitant]
     Active Substance: POLYETHYLENE GLYCOLS
     Indication: Product used for unknown indication
     Dosage: TIME INTERVAL: AS NECESSARY: 10G SACHETS SUGAR FREE, TWICE A DAY, 4000
     Route: 002

REACTIONS (5)
  - Dependence [Unknown]
  - Obsessive-compulsive disorder [Recovered/Resolved]
  - Social avoidant behaviour [Unknown]
  - Gambling [Unknown]
  - Impulsive behaviour [Unknown]
